FAERS Safety Report 9320007 (Version 2)
Quarter: 2013Q3

REPORT INFORMATION
  Report Type: Report from Study
  Country: JP (occurrence: JP)
  Receive Date: 20130530
  Receipt Date: 20130826
  Transmission Date: 20140515
  Serious: Yes (Hospitalization)
  Sender: FDA-Public Use
  Company Number: JP-ELI_LILLY_AND_COMPANY-JP201208009275

PATIENT
  Age: 75 Year
  Sex: Female

DRUGS (4)
  1. TERIPARATIDE [Suspect]
     Dosage: UNK
     Route: 058
     Dates: start: 20120804
  2. TERIPARATIDE [Suspect]
     Dosage: UNK
     Route: 058
     Dates: end: 2012
  3. TERIPARATIDE [Suspect]
     Dosage: UNK
     Route: 058
     Dates: end: 201302
  4. LENDORMIN [Concomitant]
     Dosage: 0.5 DF, UNK
     Route: 048

REACTIONS (12)
  - Nephropathy [Unknown]
  - Injection site bruising [Not Recovered/Not Resolved]
  - Medication error [Recovered/Resolved]
  - Insomnia [Unknown]
  - Nocturia [Unknown]
  - Pyrexia [Not Recovered/Not Resolved]
  - Feeling cold [Not Recovered/Not Resolved]
  - Dizziness [Not Recovered/Not Resolved]
  - Back pain [Not Recovered/Not Resolved]
  - Musculoskeletal chest pain [Not Recovered/Not Resolved]
  - Post procedural contusion [Unknown]
  - Bone density decreased [Unknown]
